FAERS Safety Report 8054601-2 (Version None)
Quarter: 2012Q1

REPORT INFORMATION
  Report Type: 
  Country: None (occurrence: None)
  Receive Date: 20120119
  Receipt Date: 20120110
  Transmission Date: 20120608
  Serious: No
  Sender: FDA-Public Use
  Company Number: US-BIOGENIDEC-2012BI001194

PATIENT
  Sex: Female

DRUGS (4)
  1. MOTION SICKNESS PILL (NOS) [Concomitant]
     Indication: PREMEDICATION
  2. AVONEX [Suspect]
     Indication: PRODUCT USED FOR UNKNOWN INDICATION
     Route: 030
  3. TRAMADOL HCL [Concomitant]
     Indication: PREMEDICATION
  4. VICODIN [Concomitant]
     Indication: PREMEDICATION

REACTIONS (1)
  - FEELING ABNORMAL [None]
